FAERS Safety Report 12463639 (Version 2)
Quarter: 2019Q2

REPORT INFORMATION
  Report Type: Spontaneous
  Country: US (occurrence: US)
  Receive Date: 20160614
  Receipt Date: 20190429
  Transmission Date: 20190711
  Serious: No
  Sender: FDA-Public Use
  Company Number: US-PFIZER INC-2016269207

PATIENT
  Age: 47 Year
  Sex: Female

DRUGS (16)
  1. LYRICA [Suspect]
     Active Substance: PREGABALIN
     Indication: PAIN
     Dosage: 150 MG, 2X/DAY (TAKE 1 CAPSULE BY MOUTH 2 TIMES DAILY)
     Route: 048
     Dates: start: 20190418, end: 2019
  2. FISH OIL [Concomitant]
     Active Substance: FISH OIL
     Dosage: 1000 MG, DAILY
     Dates: start: 20150817
  3. QUETIAPINE. [Concomitant]
     Active Substance: QUETIAPINE
     Dosage: 50 UNK, UNK (1 TABLETS IN AM AND 2-3 IN PM)
  4. VITAMIN D2 [Concomitant]
     Active Substance: ERGOCALCIFEROL
     Dosage: 2000 IU, 1X/DAY
     Route: 048
     Dates: start: 20091001
  5. BENZONATATE. [Concomitant]
     Active Substance: BENZONATATE
     Dosage: 100 MG, 3X/DAY
     Route: 048
     Dates: start: 20160114
  6. MELOXICAM. [Concomitant]
     Active Substance: MELOXICAM
     Dosage: 7.5 MG, UNK (TAKE 1-2 DAILY WITH FOOD)
     Dates: start: 20160413
  7. PRILOSEC [Concomitant]
     Active Substance: OMEPRAZOLE MAGNESIUM
     Dosage: 20 MG, 1X/DAY (BEFORE A MEAL)
     Route: 048
     Dates: start: 20131008
  8. LYRICA [Suspect]
     Active Substance: PREGABALIN
     Indication: AFFECTIVE DISORDER
     Dosage: 150 MG, 3X/DAY
     Route: 048
     Dates: start: 20160328, end: 20160413
  9. LYRICA [Suspect]
     Active Substance: PREGABALIN
     Indication: MUSCULOSKELETAL PAIN
  10. PERCOCET [Concomitant]
     Active Substance: ACETAMINOPHEN\OXYCODONE HYDROCHLORIDE
     Dosage: UNK (OXYCODONE HYDROCHLORIDE, PARACETAMOL/ 5 MG-325 MG; 2 EVERY 6-8 HOURS; MAX 6 PER DAY)
     Dates: start: 20160411
  11. CALCIUM [Concomitant]
     Active Substance: CALCIUM
     Dosage: 250 MG, UNK
     Dates: start: 20091001
  12. LYRICA [Suspect]
     Active Substance: PREGABALIN
     Indication: FIBROMYALGIA
  13. BUPROPION HCL [Concomitant]
     Active Substance: BUPROPION HYDROCHLORIDE
     Dosage: 150 MG, 1X/DAY
     Route: 048
     Dates: start: 20150218, end: 20160413
  14. FENOFIBRATE NANOCRYSTALLIZED [Concomitant]
     Dosage: 48 MG, 1X/DAY
     Route: 048
     Dates: start: 20150817
  15. QUETIAPINE. [Concomitant]
     Active Substance: QUETIAPINE
     Dosage: 100 MG, 2X/DAY
     Dates: start: 20160413
  16. SOMA [Concomitant]
     Active Substance: CARISOPRODOL
     Indication: MYALGIA
     Dosage: 350 MG, 4X/DAY
     Dates: start: 20160411

REACTIONS (19)
  - Feeling guilty [Unknown]
  - Decreased interest [Unknown]
  - Anxiety [Unknown]
  - Arthralgia [Unknown]
  - Fatigue [Unknown]
  - Restlessness [Unknown]
  - Rhinorrhoea [Unknown]
  - Night sweats [Unknown]
  - Disturbance in attention [Unknown]
  - Stress [Unknown]
  - Hot flush [Unknown]
  - Weight increased [Unknown]
  - Visual impairment [Unknown]
  - Headache [Unknown]
  - Appetite disorder [Unknown]
  - Neck pain [Unknown]
  - Depressed mood [Unknown]
  - Dyspepsia [Unknown]
  - Gait disturbance [Unknown]
